FAERS Safety Report 7559176-X (Version None)
Quarter: 2011Q2

REPORT INFORMATION
  Report Type: 
  Country: None (occurrence: None)
  Receive Date: 20110621
  Receipt Date: 20110615
  Transmission Date: 20111010
  Serious: Yes (Other)
  Sender: FDA-Public Use
  Company Number: FR-PFIZER INC-2011131153

PATIENT
  Age: 51 Year
  Sex: Male

DRUGS (3)
  1. VIAGRA [Suspect]
     Indication: ERECTILE DYSFUNCTION
     Dosage: UNK
  2. ANAFRANIL [Concomitant]
     Indication: FIBROMYALGIA
     Dosage: UNK
  3. CIALIS [Suspect]
     Dosage: UNK

REACTIONS (2)
  - HEREDITARY ANGIOEDEMA [None]
  - ABDOMINAL PAIN [None]
